FAERS Safety Report 11816420 (Version 1)
Quarter: 2015Q4

REPORT INFORMATION
  Report Type: Spontaneous
  Country: US (occurrence: US)
  Receive Date: 20151209
  Receipt Date: 20151209
  Transmission Date: 20160305
  Serious: Yes (Other)
  Sender: FDA-Public Use
  Company Number: US-JNJFOC-20151124232

PATIENT
  Age: 60 Year
  Sex: Female
  Weight: 63.5 kg

DRUGS (10)
  1. NEUTROGENA NORWEGIAN FORMULA FOOT CREAM [Suspect]
     Active Substance: COSMETICS
     Indication: HYPERKERATOSIS
     Route: 061
  2. NEUTROGENA NORWEGIAN FORMULA HAND CREAM [Suspect]
     Active Substance: COSMETICS
     Indication: DRY SKIN
     Dosage: DOSE: 1-2 A DAY
     Route: 065
  3. DIGOXIN. [Concomitant]
     Active Substance: DIGOXIN
     Indication: CARDIAC DISORDER
     Dosage: 8 YEARS
     Route: 065
  4. CARVEDILOL. [Concomitant]
     Active Substance: CARVEDILOL
     Indication: HYPERTENSION
     Dosage: 8 YEARS
     Route: 065
  5. FISH OIL W/VITAMIN E NOS [Concomitant]
     Indication: PRODUCT USED FOR UNKNOWN INDICATION
     Route: 065
  6. LISINOPRIL. [Concomitant]
     Active Substance: LISINOPRIL
     Indication: HYPERTENSION
     Dosage: 8 YEARS
     Route: 065
  7. NEUTROGENA NORWEGIAN FORMULA FOOT CREAM [Suspect]
     Active Substance: COSMETICS
     Indication: DRY SKIN
     Route: 061
  8. EQUATE NASAL [Concomitant]
     Active Substance: OXYMETAZOLINE HYDROCHLORIDE\PHENYLEPHRINE HYDROCHLORIDE
     Indication: MULTIPLE ALLERGIES
     Route: 065
  9. WARFARIN [Concomitant]
     Active Substance: WARFARIN
     Indication: ANTICOAGULANT THERAPY
     Dosage: 6-9MG/DAY, 8 YEARS
     Route: 065
  10. EQUATE NASAL [Concomitant]
     Active Substance: OXYMETAZOLINE HYDROCHLORIDE\PHENYLEPHRINE HYDROCHLORIDE
     Indication: ALLERGY TO ANIMAL
     Route: 065

REACTIONS (2)
  - Neck mass [Recovered/Resolved]
  - Neoplasm malignant [Recovered/Resolved]

NARRATIVE: CASE EVENT DATE: 201404
